FAERS Safety Report 24618798 (Version 1)
Quarter: 2024Q4

REPORT INFORMATION
  Report Type: Spontaneous
  Country: CN (occurrence: CN)
  Receive Date: 20241114
  Receipt Date: 20241114
  Transmission Date: 20250114
  Serious: Yes (Hospitalization)
  Sender: BAYER HEALTHCARE PHARMACEUTICALS INC.
  Company Number: CN-BAYER-2024A161721

PATIENT
  Age: 56 Year
  Sex: Male
  Weight: 65 kg

DRUGS (2)
  1. ULTRAVIST [Suspect]
     Active Substance: IOPROMIDE
     Indication: Angiogram cerebral
     Dosage: 100 ML, ONCE
     Route: 013
     Dates: start: 20240802, end: 20240802
  2. ULTRAVIST [Suspect]
     Active Substance: IOPROMIDE
     Indication: Cerebrovascular operation

REACTIONS (2)
  - Contrast encephalopathy [Recovering/Resolving]
  - Hemiparesis [Recovering/Resolving]

NARRATIVE: CASE EVENT DATE: 20240802
